FAERS Safety Report 13575201 (Version 1)
Quarter: 2017Q2

REPORT INFORMATION
  Report Type: Spontaneous
  Country: US (occurrence: US)
  Receive Date: 20170523
  Receipt Date: 20170523
  Transmission Date: 20170830
  Serious: No
  Sender: FDA-Public Use
  Company Number: None

PATIENT
  Age: 36 Year
  Sex: Female

DRUGS (1)
  1. CYCLOSPORINE CAP MOD 100MG [Suspect]
     Active Substance: CYCLOSPORINE

REACTIONS (3)
  - Therapy change [None]
  - Blood pressure increased [None]
  - Blood creatinine increased [None]

NARRATIVE: CASE EVENT DATE: 20170411
